FAERS Safety Report 15227954 (Version 2)
Quarter: 2018Q3

REPORT INFORMATION
  Report Type: Report from Study
  Country: US (occurrence: US)
  Receive Date: 20180801
  Receipt Date: 20180924
  Transmission Date: 20181010
  Serious: Yes (Death, Life-Threatening, Hospitalization)
  Sender: FDA-Public Use
  Company Number: PHEH2018US031848

PATIENT
  Age: 86 Year
  Sex: Female
  Weight: 79.2 kg

DRUGS (8)
  1. ASA [Concomitant]
     Active Substance: ASPIRIN
     Indication: CORONARY ARTERY DISEASE
     Dosage: 81 MG, QD
     Route: 048
     Dates: start: 20180711
  2. WELLBUTRIN [Concomitant]
     Active Substance: BUPROPION HYDROCHLORIDE
     Indication: ANXIETY
     Dosage: 150 MG, QD
     Route: 065
     Dates: start: 20180711
  3. TOPROL XL [Concomitant]
     Active Substance: METOPROLOL SUCCINATE
     Indication: CARDIAC FAILURE CONGESTIVE
     Dosage: 50 MG, QD
     Route: 048
     Dates: start: 20180711
  4. ENTRESTO [Suspect]
     Active Substance: SACUBITRIL\VALSARTAN
     Indication: CARDIAC FAILURE CONGESTIVE
     Dosage: 100 MG (49MG/51MG), BID
     Route: 048
     Dates: start: 20180711
  5. IMDUR [Concomitant]
     Active Substance: ISOSORBIDE MONONITRATE
     Indication: CORONARY ARTERY DISEASE
     Dosage: 30 MG, QD
     Route: 048
  6. PRAVACHOL [Concomitant]
     Active Substance: PRAVASTATIN SODIUM
     Indication: HIGH DENSITY LIPOPROTEIN
     Dosage: 40 MG, QD
     Route: 048
     Dates: start: 20180711
  7. ALDACTONE [Concomitant]
     Active Substance: SPIRONOLACTONE
     Indication: CARDIAC FAILURE CONGESTIVE
     Dosage: 25 MG, QD
     Route: 048
     Dates: start: 20180711
  8. CELEXA [Concomitant]
     Active Substance: CITALOPRAM HYDROBROMIDE
     Indication: ANXIETY
     Dosage: 40 MG, QD
     Route: 048
     Dates: start: 20180711

REACTIONS (5)
  - Circulatory collapse [Unknown]
  - Multiple organ dysfunction syndrome [Unknown]
  - Peripheral coldness [Unknown]
  - Fall [Unknown]
  - Peripheral ischaemia [Fatal]

NARRATIVE: CASE EVENT DATE: 20180711
